FAERS Safety Report 10279021 (Version 1)
Quarter: 2014Q3

REPORT INFORMATION
  Report Type: Spontaneous
  Country: FR (occurrence: FR)
  Receive Date: 20140707
  Receipt Date: 20140707
  Transmission Date: 20150326
  Serious: Yes (Hospitalization)
  Sender: FDA-Public Use
  Company Number: FR-EMCURE-000788

PATIENT
  Age: 60 Year
  Sex: Male

DRUGS (8)
  1. ETOPOSIDE. [Suspect]
     Active Substance: ETOPOSIDE
     Indication: TRANSPLANT
     Route: 065
     Dates: start: 20140402, end: 20140405
  2. ALPRAZOLAM. [Concomitant]
     Active Substance: ALPRAZOLAM
  3. BICNU [Suspect]
     Active Substance: CARMUSTINE
     Indication: TRANSPLANT
     Route: 065
     Dates: start: 20140402
  4. COVERSYL [Concomitant]
     Active Substance: PERINDOPRIL
  5. ARACYTINE [Suspect]
     Active Substance: CYTARABINE
     Indication: TRANSPLANT
     Route: 065
     Dates: start: 20140402, end: 20140405
  6. CARDENSIEL [Concomitant]
     Active Substance: BISOPROLOL FUMARATE
  7. ALKERAN [Suspect]
     Active Substance: MELPHALAN
     Indication: TRANSPLANT
     Route: 065
     Dates: start: 20140406
  8. CRESTOR [Concomitant]
     Active Substance: ROSUVASTATIN CALCIUM

REACTIONS (3)
  - Interstitial lung disease [Recovering/Resolving]
  - Pulmonary alveolar haemorrhage [None]
  - Off label use [Unknown]

NARRATIVE: CASE EVENT DATE: 20140426
